FAERS Safety Report 7110472-X (Version None)
Quarter: 2010Q4

REPORT INFORMATION
  Report Type: 
  Country: None (occurrence: None)
  Receive Date: 20101118
  Receipt Date: 20101109
  Transmission Date: 20110411
  Serious: Yes (Other)
  Sender: FDA-Public Use
  Company Number: DE-JNJFOC-20101103033

PATIENT
  Sex: Female

DRUGS (3)
  1. RISPERDAL [Suspect]
     Indication: ILL-DEFINED DISORDER
     Dosage: 1-0-1
     Route: 048
  2. SEROQUEL [Suspect]
     Indication: ILL-DEFINED DISORDER
     Route: 065
  3. SEROQUEL [Suspect]
     Route: 065

REACTIONS (1)
  - COMA [None]
